FAERS Safety Report 12374808 (Version 4)
Quarter: 2016Q4

REPORT INFORMATION
  Report Type: Spontaneous
  Country: US (occurrence: US)
  Receive Date: 20160517
  Receipt Date: 20161102
  Transmission Date: 20170207
  Serious: No
  Sender: FDA-Public Use
  Company Number: US-PFIZER INC-2016246141

PATIENT
  Age: 81 Year
  Sex: Female
  Weight: 68.49 kg

DRUGS (5)
  1. VISTARIL [Concomitant]
     Active Substance: HYDROXYZINE PAMOATE
     Dosage: UNK
  2. IBRANCE [Suspect]
     Active Substance: PALBOCICLIB
     Indication: NEOPLASM MALIGNANT
     Dosage: 75 MG, CYCLIC (75MG CAPSULES ONE A DAY BY MOUTH, 33 WEEKS ON AND 1 WEEK OFF)
     Dates: start: 201510, end: 20160731
  3. LETROZOLE. [Concomitant]
     Active Substance: LETROZOLE
     Indication: NEOPLASM MALIGNANT
     Dosage: 2.5 MG, 1X/DAY
     Route: 048
     Dates: start: 201510
  4. XGEVA [Concomitant]
     Active Substance: DENOSUMAB
     Indication: NEOPLASM MALIGNANT
     Dosage: UNK, MONTHLY
     Route: 030
     Dates: start: 2016
  5. IBRANCE [Suspect]
     Active Substance: PALBOCICLIB
     Dosage: 75 MG, CYCLIC (ONCE A DAY THREE WEEKS ON AND THEN ONE WEEK OFF)
     Route: 048
     Dates: start: 20160805

REACTIONS (6)
  - Neoplasm progression [Unknown]
  - Rash pustular [Unknown]
  - Therapeutic response unexpected [Unknown]
  - Decreased activity [Unknown]
  - Fatigue [Unknown]
  - Pruritus [Recovering/Resolving]

NARRATIVE: CASE EVENT DATE: 201607
